FAERS Safety Report 10011262 (Version 1)
Quarter: 2014Q1

REPORT INFORMATION
  Report Type: Spontaneous
  Country: GB (occurrence: None)
  Receive Date: 20140312
  Receipt Date: 20140312
  Transmission Date: 20141002
  Serious: Yes (Other)
  Sender: FDA-Public Use
  Company Number: GB-DEXPHARM-20140052

PATIENT
  Age: 30 Year
  Sex: Male
  Weight: 60 kg

DRUGS (2)
  1. OMEPRAZOLE [Suspect]
     Indication: RASH
     Dates: start: 20140209, end: 20140210
  2. OMEPRAZOLE [Suspect]
     Indication: SWELLING FACE
     Dates: start: 20140209, end: 20140210

REACTIONS (2)
  - Swelling face [None]
  - Rash [None]
